FAERS Safety Report 5635057-3 (Version None)
Quarter: 2008Q1

REPORT INFORMATION
  Report Type: 
  Country: None (occurrence: None)
  Receive Date: 20080222
  Receipt Date: 20080213
  Transmission Date: 20080703
  Serious: Yes (Other)
  Sender: FDA-Public Use
  Company Number: US-PFIZER INC-2007011412

PATIENT
  Sex: Female
  Weight: 68.9 kg

DRUGS (8)
  1. GENOTROPIN [Suspect]
     Indication: HYPOPITUITARISM
  2. CYTOMEL [Concomitant]
     Indication: THYROID DISORDER
  3. EVISTA [Concomitant]
     Indication: MENOPAUSAL SYMPTOMS
  4. NEXIUM [Concomitant]
  5. PREMARIN [Concomitant]
  6. BENADRYL [Concomitant]
  7. XYREM [Concomitant]
  8. MOBIC [Concomitant]

REACTIONS (7)
  - ANAPHYLACTIC REACTION [None]
  - DYSPNOEA [None]
  - HEADACHE [None]
  - INSULIN-LIKE GROWTH FACTOR INCREASED [None]
  - NAUSEA [None]
  - PULMONARY HYPERTENSION [None]
  - SLEEP APNOEA SYNDROME [None]
